FAERS Safety Report 15658670 (Version 2)
Quarter: 2018Q4

REPORT INFORMATION
  Report Type: Spontaneous
  Country: US (occurrence: US)
  Receive Date: 20181126
  Receipt Date: 20181221
  Transmission Date: 20190205
  Serious: Yes (Hospitalization, Other)
  Sender: FDA-Public Use
  Company Number: PHEH2018US049419

PATIENT
  Age: 87 Year
  Sex: Male

DRUGS (3)
  1. LEVODOPA [Concomitant]
     Active Substance: LEVODOPA
     Indication: PRODUCT USED FOR UNKNOWN INDICATION
     Route: 065
  2. AMANTADINE. [Suspect]
     Active Substance: AMANTADINE HYDROCHLORIDE
     Indication: PRODUCT USED FOR UNKNOWN INDICATION
     Route: 065
  3. CARBIDOPA. [Suspect]
     Active Substance: CARBIDOPA
     Route: 065

REACTIONS (7)
  - Medication error [Unknown]
  - Contusion [Unknown]
  - Fall [Unknown]
  - Visual impairment [Unknown]
  - Hallucination [Unknown]
  - Accidental overdose [Unknown]
  - Scratch [Unknown]

NARRATIVE: CASE EVENT DATE: 201810
